FAERS Safety Report 16442298 (Version 1)
Quarter: 2019Q2

REPORT INFORMATION
  Report Type: Report from Study
  Country: None (occurrence: US)
  Receive Date: 20190617
  Receipt Date: 20190617
  Transmission Date: 20190711
  Serious: No
  Sender: FDA-Public Use
  Company Number: US-US WORLDMEDS, LLC-USW201903-000568

PATIENT
  Age: 77 Year
  Sex: Female
  Weight: 99.79 kg

DRUGS (6)
  1. SYNTHROID [Concomitant]
     Active Substance: LEVOTHYROXINE SODIUM
  2. ELIQUIS [Concomitant]
     Active Substance: APIXABAN
  3. PRAMIPEXOLE. [Concomitant]
     Active Substance: PRAMIPEXOLE
  4. SIMVASTATIN. [Concomitant]
     Active Substance: SIMVASTATIN
  5. ATENOLOL. [Concomitant]
     Active Substance: ATENOLOL
  6. APOKYN [Suspect]
     Active Substance: APOMORPHINE HYDROCHLORIDE
     Indication: PARKINSON^S DISEASE
     Route: 058
     Dates: start: 20190228

REACTIONS (3)
  - Vomiting [Recovered/Resolved]
  - Dizziness [Recovered/Resolved]
  - Nausea [Recovered/Resolved]

NARRATIVE: CASE EVENT DATE: 20190320
